FAERS Safety Report 6616279-1 (Version None)
Quarter: 2010Q1

REPORT INFORMATION
  Report Type: 
  Country: None (occurrence: None)
  Receive Date: 20100305
  Receipt Date: 20100225
  Transmission Date: 20100710
  Serious: Yes (Other)
  Sender: FDA-Public Use
  Company Number: GB-ABBOTT-10P-167-0629011-00

PATIENT
  Age: 41 Year
  Sex: Male

DRUGS (7)
  1. VALPROATE SODIUM [Suspect]
     Indication: DRUG USE FOR UNKNOWN INDICATION
  2. SULPIRIDE [Suspect]
     Indication: DRUG USE FOR UNKNOWN INDICATION
     Route: 065
  3. CLOZAPINE [Suspect]
     Indication: DRUG USE FOR UNKNOWN INDICATION
     Route: 048
     Dates: start: 20091012
  4. OLANZAPINE [Suspect]
     Indication: DRUG USE FOR UNKNOWN INDICATION
     Route: 065
  5. PROCYCLIDINE HYDROCHLORIDE 2MG TAB [Suspect]
     Indication: DRUG USE FOR UNKNOWN INDICATION
  6. SIMVASTATIN [Concomitant]
     Indication: DRUG USE FOR UNKNOWN INDICATION
  7. CLOZAPINE [Concomitant]
     Dates: start: 20090520, end: 20091011

REACTIONS (3)
  - ABNORMAL BEHAVIOUR [None]
  - PALPITATIONS [None]
  - RESTLESSNESS [None]
